FAERS Safety Report 12297343 (Version 1)
Quarter: 2016Q2

REPORT INFORMATION
  Report Type: Spontaneous
  Country: US (occurrence: US)
  Receive Date: 20160422
  Receipt Date: 20160422
  Transmission Date: 20160815
  Serious: Yes (Other)
  Sender: FDA-Public Use
  Company Number: ADR-2015-01167

PATIENT
  Age: 33 Year
  Sex: Male

DRUGS (1)
  1. BACLOFEN. [Suspect]
     Active Substance: BACLOFEN
     Route: 037

REACTIONS (5)
  - Meningitis [Unknown]
  - White blood cell count increased [Unknown]
  - Abdominal rigidity [Unknown]
  - Headache [Unknown]
  - Central nervous system infection [Unknown]
